FAERS Safety Report 4917659-2 (Version None)
Quarter: 2006Q1

REPORT INFORMATION
  Report Type: 
  Country: None (occurrence: None)
  Receive Date: 20060215
  Receipt Date: 20060127
  Transmission Date: 20060701
  Serious: Yes (Other)
  Sender: FDA-Public Use
  Company Number: PCA0498277

PATIENT
  Sex: Male

DRUGS (1)
  1. PSEUDEOPHEDRINE HCL [Suspect]
     Dosage: 120 MG, ONCE, ORAL
     Route: 048

REACTIONS (2)
  - CONVULSION [None]
  - FALL [None]
